FAERS Safety Report 6957435-2 (Version None)
Quarter: 2010Q3

REPORT INFORMATION
  Report Type: 
  Country: None (occurrence: None)
  Receive Date: 20100831
  Receipt Date: 20100817
  Transmission Date: 20110219
  Serious: Yes (Other)
  Sender: FDA-Public Use
  Company Number: GB-TYCO HEALTHCARE/MALLINCKRODT-T201001824

PATIENT
  Age: 32 Week

DRUGS (2)
  1. METHADOSE [Suspect]
     Dosage: UNK
  2. ALCOHOL [Suspect]
     Dosage: UNK

REACTIONS (2)
  - DEVELOPMENTAL DELAY [None]
  - PREMATURE BABY [None]
